FAERS Safety Report 5651131-X (Version None)
Quarter: 2008Q1

REPORT INFORMATION
  Report Type: 
  Country: None (occurrence: None)
  Receive Date: 20080131
  Receipt Date: 20071226
  Transmission Date: 20080703
  Serious: No
  Sender: FDA-Public Use
  Company Number: US200712004793

PATIENT
  Age: 31 Year
  Sex: Female
  Weight: 113.4 kg

DRUGS (5)
  1. BYETTA [Suspect]
     Indication: TYPE 2 DIABETES MELLITUS
     Dosage: 5 UG, 2/D, SUBCUTANEOUS
     Route: 058
     Dates: start: 20071001
  2. GLUCOPHAGE [Concomitant]
  3. SYNTHROID [Concomitant]
  4. LABETALOL HCL [Concomitant]
  5. LAMICTAL [Concomitant]

REACTIONS (7)
  - BLOOD GLUCOSE DECREASED [None]
  - COLD SWEAT [None]
  - MALAISE [None]
  - MYOCARDIAL INFARCTION [None]
  - VISION BLURRED [None]
  - VOMITING [None]
  - WEIGHT DECREASED [None]
